FAERS Safety Report 11109408 (Version 1)
Quarter: 2015Q2

REPORT INFORMATION
  Report Type: Spontaneous
  Country: CH (occurrence: CH)
  Receive Date: 20150513
  Receipt Date: 20150513
  Transmission Date: 20150821
  Serious: Yes (Life-Threatening, Hospitalization, Other)
  Sender: FDA-Public Use
  Company Number: CH-PFIZER INC-2015157940

PATIENT
  Age: 57 Year
  Sex: Female
  Weight: 83 kg

DRUGS (12)
  1. CALCIMAGON D3 [Concomitant]
     Active Substance: CALCIUM\CHOLECALCIFEROL
     Dosage: UNK, 1X/DAY
     Route: 048
  2. NEXIUM MUPS 40 [Concomitant]
     Dosage: 40 MG, 1X/DAY
     Route: 048
  3. MAGNESIOCARD ORANGE [Concomitant]
     Dosage: 10 MMOL, 1X/DAY
     Route: 048
     Dates: end: 201504
  4. CYMBALTA [Concomitant]
     Active Substance: DULOXETINE HYDROCHLORIDE
     Indication: DEPRESSION
     Dosage: 30 MG, 1X/DAY
     Route: 048
  5. VI-DE 3 [Concomitant]
     Dosage: 8 GTT, DAILY
     Route: 041
  6. XELJANZ [Suspect]
     Active Substance: TOFACITINIB CITRATE
     Indication: PSORIATIC ARTHROPATHY
     Dosage: 5 MG, 2X/DAY
     Route: 048
     Dates: start: 201408, end: 20150323
  7. ACIDUM FOLICUM [Concomitant]
     Active Substance: FOLIC ACID
     Indication: PROPHYLAXIS
     Dosage: 5 MG, 1X/DAY
     Route: 048
     Dates: end: 201504
  8. IMOVANE [Concomitant]
     Active Substance: ZOPICLONE
     Dosage: 3.75 MG, 1X/DAY
     Route: 048
  9. OXYCONTIN [Concomitant]
     Active Substance: OXYCODONE HYDROCHLORIDE
     Indication: PSORIATIC ARTHROPATHY
     Dosage: 20 MG, 2X/DAY
     Route: 048
  10. METHOTREXATE SODIUM. [Interacting]
     Active Substance: METHOTREXATE SODIUM
     Indication: PSORIATIC ARTHROPATHY
     Dosage: 25 MG, WEEKLY
     Route: 030
     Dates: start: 2010, end: 201504
  11. CLARITHROMYCIN. [Interacting]
     Active Substance: CLARITHROMYCIN
     Indication: BRONCHOPNEUMOPATHY
     Dosage: 500 MG, 2X/DAY
     Route: 048
     Dates: start: 20150313, end: 20150320
  12. CONDROSULF [Concomitant]
     Active Substance: CHONDROITIN SULFATE (CHICKEN)
     Indication: PSORIATIC ARTHROPATHY
     Dosage: 800 MG, 1X/DAY
     Route: 048
     Dates: end: 201504

REACTIONS (12)
  - Cytomegalovirus viraemia [Recovered/Resolved]
  - Cytomegalovirus colitis [Recovering/Resolving]
  - Product use issue [Unknown]
  - Myelitis [Recovering/Resolving]
  - Superinfection bacterial [Recovering/Resolving]
  - Herpes zoster cutaneous disseminated [Recovering/Resolving]
  - Drug interaction [Recovering/Resolving]
  - Faecal incontinence [Recovering/Resolving]
  - Urinary incontinence [Recovering/Resolving]
  - Paresis anal sphincter [Recovering/Resolving]
  - Haemoglobin decreased [Recovered/Resolved]
  - Gastrointestinal ulcer haemorrhage [Recovered/Resolved]

NARRATIVE: CASE EVENT DATE: 201408
